FAERS Safety Report 15127119 (Version 2)
Quarter: 2018Q3

REPORT INFORMATION
  Report Type: Spontaneous
  Country: IT (occurrence: IT)
  Receive Date: 20180710
  Receipt Date: 20180724
  Transmission Date: 20181010
  Serious: Yes (Death, Hospitalization)
  Sender: FDA-Public Use
  Company Number: IT-BAYER-2018-124525

PATIENT
  Age: 55 Year
  Sex: Male

DRUGS (2)
  1. REGORAFENIB. [Suspect]
     Active Substance: REGORAFENIB
     Indication: RECTAL CANCER METASTATIC
     Dosage: DAILY DOSE 160 MG
     Dates: start: 201604
  2. REGORAFENIB. [Suspect]
     Active Substance: REGORAFENIB
     Indication: RECTAL CANCER METASTATIC
     Dosage: DAILY DOSE 120 MG
     Route: 048

REACTIONS (5)
  - Palpitations [None]
  - Blood pressure inadequately controlled [None]
  - Metastases to heart [Fatal]
  - Dyspnoea at rest [None]
  - Palmar-plantar erythrodysaesthesia syndrome [None]

NARRATIVE: CASE EVENT DATE: 2016
